FAERS Safety Report 10196176 (Version 1)
Quarter: 2014Q2

REPORT INFORMATION
  Report Type: Spontaneous
  Country: US (occurrence: US)
  Receive Date: 20140527
  Receipt Date: 20140527
  Transmission Date: 20141212
  Serious: Yes (Death, Other)
  Sender: FDA-Public Use
  Company Number: US-NOVOPROD-410757

PATIENT
  Sex: Male

DRUGS (1)
  1. NOVOLIN N [Suspect]
     Indication: DIABETES MELLITUS
     Route: 058

REACTIONS (2)
  - Incorrect product storage [Not Recovered/Not Resolved]
  - Blood glucose increased [Fatal]
